FAERS Safety Report 8117884-6 (Version None)
Quarter: 2012Q1

REPORT INFORMATION
  Report Type: 
  Country: None (occurrence: None)
  Receive Date: 20120207
  Receipt Date: 20120127
  Transmission Date: 20120608
  Serious: No
  Sender: FDA-Public Use
  Company Number: US-B.I. PHARMACEUTICALS,INC./RIDGEFIELD-2011-BP-03500BP

PATIENT
  Sex: Female

DRUGS (5)
  1. PRADAXA [Suspect]
     Indication: ATRIAL FIBRILLATION
     Dosage: 300 MG
     Route: 048
     Dates: start: 20101201, end: 20110201
  2. PRADAXA [Suspect]
     Dosage: 150 MG
     Route: 048
     Dates: start: 20110201
  3. RIFAMPIN [Concomitant]
     Dates: end: 20110303
  4. HYDROCHLOROTHIAZIDE [Concomitant]
     Dates: end: 20110118
  5. NATTOKINASE [Concomitant]

REACTIONS (7)
  - FLUSHING [None]
  - FLATULENCE [None]
  - DYSPEPSIA [None]
  - JOINT SWELLING [None]
  - OEDEMA PERIPHERAL [None]
  - ERUCTATION [None]
  - BLOOD PRESSURE INCREASED [None]
